FAERS Safety Report 5946975-0 (Version None)
Quarter: 2008Q4

REPORT INFORMATION
  Report Type: 
  Country: None (occurrence: None)
  Receive Date: 20081110
  Receipt Date: 20081030
  Transmission Date: 20090506
  Serious: Yes (Other)
  Sender: FDA-Public Use
  Company Number: US-AVENTIS-200718351US

PATIENT
  Sex: Female
  Weight: 100 kg

DRUGS (12)
  1. KETEK [Suspect]
     Dosage: DOSE: UNK
     Route: 048
     Dates: start: 20051201
  2. KETEK [Suspect]
     Route: 048
     Dates: start: 20060202, end: 20060211
  3. ANTIBIOTICS [Concomitant]
     Dosage: DOSE: UNK
  4. PREDNISOLONE [Concomitant]
     Dosage: DOSE: UNK
  5. ORTHO TRI-CYCLEN [Concomitant]
     Dosage: DOSE: UNK
  6. CENTRUM                            /00554501/ [Concomitant]
     Dosage: DOSE: UNK
  7. ACTIGALL [Concomitant]
  8. ZYRTEC [Concomitant]
     Dosage: DOSE: UNK
  9. SUDAFED 12 HOUR [Concomitant]
     Dosage: DOSE: UNK
  10. ALLEGRA-D 12 HOUR [Concomitant]
     Dosage: DOSE: UNK
     Dates: end: 20070501
  11. SINGULAIR [Concomitant]
     Dosage: DOSE: UNK
  12. BENADRYL [Concomitant]
     Dosage: DOSE: UNK

REACTIONS (14)
  - ALANINE AMINOTRANSFERASE INCREASED [None]
  - ANOREXIA [None]
  - ASPARTATE AMINOTRANSFERASE INCREASED [None]
  - BLOOD BILIRUBIN INCREASED [None]
  - CHILLS [None]
  - CHOLESTASIS [None]
  - CHROMATURIA [None]
  - FATIGUE [None]
  - GALLBLADDER OEDEMA [None]
  - HEPATITIS [None]
  - JAUNDICE [None]
  - NAUSEA [None]
  - PRURITUS [None]
  - THIRST [None]
